FAERS Safety Report 6034045-5 (Version None)
Quarter: 2009Q1

REPORT INFORMATION
  Report Type: 
  Country: None (occurrence: None)
  Receive Date: 20090108
  Receipt Date: 20090108
  Transmission Date: 20090719
  Serious: No
  Sender: FDA-Public Use
  Company Number: None

PATIENT
  Age: 49 Year
  Sex: Male
  Weight: 73 kg

DRUGS (1)
  1. SUCCINYLCHOLINE CHLORIDE [Suspect]
     Dates: start: 20081021, end: 20081021

REACTIONS (4)
  - OXYGEN SATURATION DECREASED [None]
  - PARALYSIS [None]
  - PSEUDOCHOLINESTERASE DEFICIENCY [None]
  - STRIDOR [None]
